FAERS Safety Report 9353775 (Version 1)
Quarter: 2013Q2

REPORT INFORMATION
  Report Type: Spontaneous
  Country: CH (occurrence: CH)
  Receive Date: 20130618
  Receipt Date: 20130618
  Transmission Date: 20140414
  Serious: Yes (Other)
  Sender: FDA-Public Use
  Company Number: CH-PFIZER INC-2013179563

PATIENT
  Age: 40 Year
  Sex: Male

DRUGS (1)
  1. PHENYTOIN [Suspect]
     Indication: PROPHYLAXIS
     Dosage: UNK

REACTIONS (3)
  - Hypocalcaemia [Recovered/Resolved]
  - Vitamin D deficiency [Unknown]
  - Convulsion [Recovered/Resolved]
